FAERS Safety Report 8512444-7 (Version None)
Quarter: 2012Q2

REPORT INFORMATION
  Report Type: 
  Country: None (occurrence: None)
  Receive Date: 20120406
  Receipt Date: 20111230
  Transmission Date: 20120825
  Serious: Yes (Hospitalization)
  Sender: FDA-Public Use
  Company Number: US-CYPR-2011-000100

PATIENT
  Sex: Male
  Weight: 104 kg

DRUGS (25)
  1. ASPIRIN [Suspect]
     Indication: CORONARY ARTERY DISEASE
     Dosage: 325 MG ORAL
     Route: 048
     Dates: start: 20091007
  2. LANOXIN [Concomitant]
  3. ACEBUTOLOL [Concomitant]
  4. CYPHER STENT (1) [Concomitant]
  5. CLOPIDOGREL [Suspect]
     Indication: ANTIPLATELET THERAPY
     Dosage: 75 MG ORAL, 75 MG ORAL
     Route: 048
     Dates: start: 20111229
  6. CLOPIDOGREL [Suspect]
     Indication: ANTIPLATELET THERAPY
     Dosage: 75 MG ORAL, 75 MG ORAL
     Route: 048
     Dates: start: 20101013, end: 20111002
  7. NORFLEX [Concomitant]
  8. TRICOR [Concomitant]
  9. BENICAR [Concomitant]
  10. DAYPRO [Concomitant]
  11. ULTRAM [Concomitant]
  12. AMARYL [Concomitant]
  13. CYPHER STENT (2) [Concomitant]
  14. CYPHER STENT (3) [Concomitant]
  15. LASIX [Concomitant]
  16. SINGULAIR [Concomitant]
  17. NEURONTIN [Concomitant]
  18. METFORMIN HYDROCHLORIDE [Concomitant]
  19. ZETIA [Concomitant]
  20. LEXAPRO [Concomitant]
  21. ACTOS [Concomitant]
  22. POTASSIUM CHLORIDE [Concomitant]
  23. HUMIRA [Concomitant]
  24. NITROGLYCERIN [Concomitant]
  25. CLONAZEPAM [Concomitant]

REACTIONS (1)
  - INTERVERTEBRAL DISCITIS [None]
